FAERS Safety Report 11475145 (Version 37)
Quarter: 2021Q4

REPORT INFORMATION
  Report Type: Other
  Country: CA (occurrence: None)
  Receive Date: 20150908
  Receipt Date: 20211125
  Transmission Date: 20220303
  Serious: Yes (Other)
  Sender: FDA-Public Use
  Company Number: CA-ROCHE-1188683

PATIENT
  Age: 29 Year
  Sex: Female
  Weight: 81 kg

DRUGS (28)
  1. ACTEMRA [Suspect]
     Active Substance: TOCILIZUMAB
     Indication: Rheumatoid arthritis
     Route: 042
     Dates: start: 20130312, end: 20130702
  2. ACTEMRA [Suspect]
     Active Substance: TOCILIZUMAB
     Route: 042
     Dates: start: 20130730, end: 20150723
  3. ACTEMRA [Suspect]
     Active Substance: TOCILIZUMAB
     Route: 042
     Dates: start: 20150528
  4. ACTEMRA [Suspect]
     Active Substance: TOCILIZUMAB
     Route: 042
     Dates: start: 20150625
  5. ACTEMRA [Suspect]
     Active Substance: TOCILIZUMAB
     Route: 042
     Dates: start: 20150903
  6. ACTEMRA [Suspect]
     Active Substance: TOCILIZUMAB
     Route: 042
     Dates: start: 2015
  7. ACTEMRA [Suspect]
     Active Substance: TOCILIZUMAB
     Route: 042
     Dates: start: 20120807, end: 20120821
  8. RITUXAN [Suspect]
     Active Substance: RITUXIMAB
     Indication: Rheumatoid arthritis
     Route: 042
     Dates: start: 20120807, end: 20120821
  9. RITUXAN [Suspect]
     Active Substance: RITUXIMAB
     Route: 042
     Dates: start: 20130312, end: 20130702
  10. RITUXAN [Suspect]
     Active Substance: RITUXIMAB
     Route: 042
     Dates: start: 20130730, end: 20150723
  11. RITUXAN [Suspect]
     Active Substance: RITUXIMAB
     Route: 042
     Dates: start: 20150903
  12. PNEUMOCOCCAL VACCINE POLYVALENT NOS [Suspect]
     Active Substance: PNEUMOCOCCAL VACCINE POLYVALENT
     Indication: Product used for unknown indication
     Route: 065
  13. FLAGYL [Suspect]
     Active Substance: METRONIDAZOLE\METRONIDAZOLE HYDROCHLORIDE
     Indication: Product used for unknown indication
     Route: 065
  14. MARVELON [Concomitant]
     Active Substance: DESOGESTREL\ETHINYL ESTRADIOL
  15. FLONASE [Concomitant]
     Active Substance: FLUTICASONE PROPIONATE
  16. BRICANYL [Concomitant]
     Active Substance: TERBUTALINE SULFATE
  17. PULMICORT TURBUHALER [Concomitant]
     Active Substance: BUDESONIDE
  18. VALTREX [Concomitant]
     Active Substance: VALACYCLOVIR HYDROCHLORIDE
  19. DIPHENHYDRAMINE HYDROCHLORIDE [Concomitant]
     Active Substance: DIPHENHYDRAMINE HYDROCHLORIDE
     Indication: Premedication
     Route: 048
     Dates: start: 20120821, end: 20120821
  20. ACETAMINOPHEN [Concomitant]
     Active Substance: ACETAMINOPHEN
     Indication: Premedication
     Route: 048
     Dates: start: 20120821, end: 20120821
  21. METHYLPREDNISOLONE [Concomitant]
     Active Substance: METHYLPREDNISOLONE
     Indication: Premedication
     Route: 042
     Dates: start: 20120821, end: 20120821
  22. TYLENOL [Concomitant]
     Active Substance: ACETAMINOPHEN
     Route: 048
     Dates: start: 20120807, end: 20120821
  23. BENADRYL [Concomitant]
     Active Substance: DIPHENHYDRAMINE HYDROCHLORIDE
     Route: 048
     Dates: start: 20120807, end: 20120821
  24. SOLU-MEDROL [Concomitant]
     Active Substance: METHYLPREDNISOLONE SODIUM SUCCINATE
     Route: 042
     Dates: start: 20120807, end: 20120821
  25. METHOTREXATE [Concomitant]
     Active Substance: METHOTREXATE
  26. FOLIC ACID [Concomitant]
     Active Substance: FOLIC ACID
  27. PLAQUENIL [Concomitant]
     Active Substance: HYDROXYCHLOROQUINE SULFATE
  28. CELEBREX [Concomitant]
     Active Substance: CELECOXIB

REACTIONS (27)
  - Drug ineffective [Unknown]
  - Subcutaneous abscess [Recovered/Resolved]
  - Cellulitis [Not Recovered/Not Resolved]
  - Neutropenia [Unknown]
  - Pain [Unknown]
  - Arthralgia [Not Recovered/Not Resolved]
  - Therapeutic response decreased [Unknown]
  - Infusion related reaction [Unknown]
  - Upper-airway cough syndrome [Recovered/Resolved]
  - Lower respiratory tract infection [Recovering/Resolving]
  - Body temperature decreased [Unknown]
  - Cough [Recovered/Resolved]
  - Blood pressure diastolic decreased [Unknown]
  - Ingrown hair [Unknown]
  - Skin disorder [Unknown]
  - Arthropod bite [Unknown]
  - Injection related reaction [Recovered/Resolved]
  - Body temperature decreased [Unknown]
  - Blood pressure diastolic decreased [Unknown]
  - Bacterial vaginosis [Unknown]
  - Acne [Unknown]
  - Rash [Recovered/Resolved]
  - Hypotension [Unknown]
  - Weight increased [Recovering/Resolving]
  - Sinusitis [Recovered/Resolved]
  - Heart rate decreased [Unknown]
  - Weight decreased [Unknown]

NARRATIVE: CASE EVENT DATE: 20130603
